FAERS Safety Report 14544175 (Version 1)
Quarter: 2018Q1

REPORT INFORMATION
  Report Type: Spontaneous
  Country: GB (occurrence: GB)
  Receive Date: 20180216
  Receipt Date: 20180216
  Transmission Date: 20180509
  Serious: Yes (Other)
  Sender: FDA-Public Use
  Company Number: GB-NAPPMUNDI-GBR-2018-0053253

PATIENT
  Age: 83 Year
  Sex: Female

DRUGS (4)
  1. BUTRANS [Suspect]
     Active Substance: BUPRENORPHINE
     Indication: PRODUCT USED FOR UNKNOWN INDICATION
     Route: 062
  2. RIVASTIGMINE. [Suspect]
     Active Substance: RIVASTIGMINE
     Indication: VASCULAR DEMENTIA
  3. RIVASTIGMINE. [Suspect]
     Active Substance: RIVASTIGMINE
     Indication: DEMENTIA ALZHEIMER^S TYPE
     Dosage: 1 DF, DAILY (4.6MG/24 HOURS)
     Route: 065
     Dates: start: 2016
  4. CLOPIDOGREL [Concomitant]
     Active Substance: CLOPIDOGREL BISULFATE
     Indication: BLOOD CHOLESTEROL ABNORMAL
     Route: 065

REACTIONS (10)
  - Pruritus [Unknown]
  - Skin reaction [Unknown]
  - Erythema [Unknown]
  - Rash [Unknown]
  - Blister rupture [Unknown]
  - Product adhesion issue [Unknown]
  - Dry skin [Unknown]
  - Rash vesicular [Unknown]
  - Immune system disorder [Unknown]
  - Nightmare [Unknown]
